FAERS Safety Report 14011759 (Version 3)
Quarter: 2017Q4

REPORT INFORMATION
  Report Type: Spontaneous
  Country: DE (occurrence: DE)
  Receive Date: 20170926
  Receipt Date: 20171120
  Transmission Date: 20180321
  Serious: No
  Sender: FDA-Public Use
  Company Number: DE-CELGENEUS-DEU-20170905537

PATIENT
  Age: 4 Decade
  Sex: Female
  Weight: 145 kg

DRUGS (1)
  1. OTEZLA [Suspect]
     Active Substance: APREMILAST
     Indication: PSORIASIS
     Dosage: 2 DOSAGE FORMS
     Route: 048
     Dates: start: 20170707

REACTIONS (4)
  - Headache [Not Recovered/Not Resolved]
  - Rash pustular [Recovered/Resolved]
  - Subcutaneous abscess [Recovered/Resolved]
  - Diarrhoea [Recovered/Resolved]

NARRATIVE: CASE EVENT DATE: 201707
